FAERS Safety Report 9193354 (Version 1)
Quarter: 2013Q1

REPORT INFORMATION
  Report Type: Spontaneous
  Country: US (occurrence: US)
  Receive Date: 20130327
  Receipt Date: 20130327
  Transmission Date: 20140127
  Serious: No
  Sender: FDA-Public Use
  Company Number: US-009507513-1303USA011084

PATIENT
  Sex: Female

DRUGS (4)
  1. DULERA [Suspect]
     Indication: CHRONIC OBSTRUCTIVE PULMONARY DISEASE
     Dosage: TWO PUFFS EVERY TWELVE HOURS
     Route: 048
     Dates: start: 201302
  2. PROAIR (ALBUTEROL SULFATE) [Concomitant]
  3. SPIRIVA [Concomitant]
  4. OXYGEN [Concomitant]

REACTIONS (3)
  - Increased appetite [Not Recovered/Not Resolved]
  - Weight increased [Not Recovered/Not Resolved]
  - Incorrect route of drug administration [Unknown]
